FAERS Safety Report 7219928-2 (Version None)
Quarter: 2011Q1

REPORT INFORMATION
  Report Type: 
  Country: None (occurrence: None)
  Receive Date: 20110111
  Receipt Date: 20110103
  Transmission Date: 20110831
  Serious: Yes (Hospitalization)
  Sender: FDA-Public Use
  Company Number: US-NAPPMUNDI-USA-2010-0056330

PATIENT
  Age: 41 Year
  Sex: Female
  Weight: 51.02 kg

DRUGS (23)
  1. AXITINIB [Suspect]
     Indication: COLORECTAL CANCER METASTATIC
     Dosage: 10 MG, BID
     Route: 048
     Dates: start: 20101023, end: 20101029
  2. ADRUCIL [Suspect]
     Indication: COLORECTAL CANCER METASTATIC
     Dosage: 600 MG, BIW
     Route: 040
     Dates: start: 20101108
  3. ALBUMIN (HUMAN) [Concomitant]
     Indication: PRODUCT USED FOR UNKNOWN INDICATION
     Dosage: UNK
     Dates: start: 20101031, end: 20101031
  4. SENOKOT                            /00142205/ [Concomitant]
     Indication: CONSTIPATION
     Dosage: UNK
     Dates: start: 20100901
  5. MS CONTIN [Suspect]
     Indication: ABDOMINAL PAIN
     Dosage: UNK
     Dates: start: 20100901
  6. MSIR [Suspect]
     Indication: ABDOMINAL PAIN
     Dosage: UNK
     Dates: start: 20100901
  7. IRINOTECAN HYDROCHLORIDE [Suspect]
     Indication: COLORECTAL CANCER METASTATIC
     Dosage: 232 MG, BIW
     Route: 042
     Dates: start: 20101108
  8. ZOFRAN [Concomitant]
     Indication: PRODUCT USED FOR UNKNOWN INDICATION
     Dosage: UNK
     Dates: start: 20101029
  9. COMPAZINE [Concomitant]
     Indication: NAUSEA
     Dosage: UNK
     Dates: start: 20101109
  10. BISACODYL [Concomitant]
     Indication: PRODUCT USED FOR UNKNOWN INDICATION
     Dosage: UNK
     Dates: start: 20101029, end: 20101101
  11. ATIVAN [Concomitant]
     Indication: ANXIETY
  12. MIRALAX [Concomitant]
     Indication: CONSTIPATION
     Dosage: UNK
     Dates: start: 20101029
  13. ATROPINE [Concomitant]
     Indication: PRODUCT USED FOR UNKNOWN INDICATION
     Dosage: UNK
     Dates: start: 20101108
  14. PALONOSETRON [Concomitant]
     Indication: PRODUCT USED FOR UNKNOWN INDICATION
     Dosage: UNK
     Dates: start: 20101108
  15. CEFTRIAXONE [Concomitant]
     Indication: PRODUCT USED FOR UNKNOWN INDICATION
     Dosage: UNK
     Dates: start: 20101029, end: 20101031
  16. SCOPOLAMINE [Concomitant]
     Indication: PRODUCT USED FOR UNKNOWN INDICATION
     Dosage: UNK
     Dates: start: 20101029, end: 20101101
  17. NYSTATIN [Concomitant]
     Indication: ORAL CANDIDIASIS
     Dosage: UNK
     Dates: start: 20101108
  18. DILAUDID [Concomitant]
     Indication: PRODUCT USED FOR UNKNOWN INDICATION
     Dosage: UNK
     Dates: start: 20101029, end: 20101029
  19. ATIVAN [Concomitant]
     Indication: INSOMNIA
     Dosage: UNK
     Dates: start: 20080101
  20. DECADRON [Concomitant]
     Indication: PRODUCT USED FOR UNKNOWN INDICATION
     Dosage: UNK
     Dates: start: 20101108
  21. ADRUCIL [Suspect]
     Dosage: 3600 MG, BIW
     Route: 041
     Dates: start: 20101108
  22. SYNTHROID [Concomitant]
     Indication: HYPOTHYROIDISM
     Dosage: UNK
     Dates: start: 20101101
  23. WELLCOVORIN [Suspect]
     Indication: COLORECTAL CANCER METASTATIC
     Dosage: 600 MG, BIW
     Route: 042
     Dates: start: 20101108

REACTIONS (2)
  - DYSPNOEA [None]
  - ABDOMINAL PAIN [None]
